FAERS Safety Report 19782854 (Version 3)
Quarter: 2021Q3

REPORT INFORMATION
  Report Type: Spontaneous
  Country: ZA (occurrence: ZA)
  Receive Date: 20210902
  Receipt Date: 20210906
  Transmission Date: 20211014
  Serious: Yes (Life-Threatening, Hospitalization, Other)
  Sender: FDA-Public Use
  Company Number: ZA-ALLERGAN-2130956US

PATIENT
  Sex: Female

DRUGS (7)
  1. CEFTAZIDIME;AVIBACTAM ? BP [Suspect]
     Active Substance: AVIBACTAM SODIUM\CEFTAZIDIME
     Indication: SERRATIA INFECTION
     Dosage: UNK
  2. CEFTAZIDIME. [Suspect]
     Active Substance: CEFTAZIDIME
     Indication: SERRATIA INFECTION
     Dosage: 50 MG/KG, 3X/DAY
  3. CEFTAZIDIME. [Suspect]
     Active Substance: CEFTAZIDIME
     Indication: PSEUDOMONAS INFECTION
  4. AMIKACIN. [Concomitant]
     Active Substance: AMIKACIN
     Indication: PSEUDOMONAS INFECTION
     Dosage: UNK
  5. TIGECYCLINE. [Concomitant]
     Active Substance: TIGECYCLINE
     Indication: PSEUDOMONAS INFECTION
     Dosage: UNK
  6. TIGECYCLINE. [Concomitant]
     Active Substance: TIGECYCLINE
     Indication: SERRATIA INFECTION
  7. AMIKACIN. [Concomitant]
     Active Substance: AMIKACIN
     Indication: PSEUDOMONAS INFECTION

REACTIONS (4)
  - Wrong product administered [Unknown]
  - Serratia infection [Recovered/Resolved]
  - Accidental exposure to product [Unknown]
  - Condition aggravated [Recovered/Resolved]
